FAERS Safety Report 13966545 (Version 1)
Quarter: 2017Q3

REPORT INFORMATION
  Report Type: Spontaneous
  Country: FR (occurrence: FR)
  Receive Date: 20170913
  Receipt Date: 20170913
  Transmission Date: 20171128
  Serious: Yes (Other)
  Sender: FDA-Public Use
  Company Number: FR-MYLANLABS-2017M1057275

PATIENT
  Age: 42 Year
  Sex: Male

DRUGS (6)
  1. LEPONEX [Suspect]
     Active Substance: CLOZAPINE
     Indication: PRODUCT USED FOR UNKNOWN INDICATION
     Dosage: 500 MG, BID
  2. THERALENE [Concomitant]
     Active Substance: TRIMEPRAZINE
     Indication: PRODUCT USED FOR UNKNOWN INDICATION
     Dosage: UNK
  3. ANDROCUR [Concomitant]
     Active Substance: CYPROTERONE ACETATE
     Indication: PRODUCT USED FOR UNKNOWN INDICATION
     Dosage: UNK
     Dates: start: 2010
  4. LEPONEX [Suspect]
     Active Substance: CLOZAPINE
     Dosage: 575 MG, BID
     Dates: start: 201706
  5. ENANTONE LP [Concomitant]
     Active Substance: LEUPROLIDE ACETATE
     Indication: PRODUCT USED FOR UNKNOWN INDICATION
     Dosage: UNK
  6. LEPONEX [Suspect]
     Active Substance: CLOZAPINE
     Dosage: 400 MG, QD
     Dates: start: 2017

REACTIONS (2)
  - Anxiety [Unknown]
  - Priapism [Recovered/Resolved]

NARRATIVE: CASE EVENT DATE: 201706
